FAERS Safety Report 25622074 (Version 5)
Quarter: 2025Q3

REPORT INFORMATION
  Report Type: Report from Study
  Country: US (occurrence: US)
  Receive Date: 20250730
  Receipt Date: 20250901
  Transmission Date: 20251020
  Serious: Yes (Other)
  Sender: ACADIA PHARMACEUTICALS
  Company Number: US-ACADIA PHARMACEUTICALS INC.-ACA-2025-PIM-008727

PATIENT
  Sex: Female

DRUGS (20)
  1. NUPLAZID [Suspect]
     Active Substance: PIMAVANSERIN TARTRATE
     Indication: Parkinson^s disease
     Dosage: 34 MILLIGRAM, QD
     Route: 048
     Dates: start: 20240418
  2. NUPLAZID [Suspect]
     Active Substance: PIMAVANSERIN TARTRATE
     Indication: Hallucination
  3. LEVOTHYROXINE SODIUM [Concomitant]
     Active Substance: LEVOTHYROXINE SODIUM
     Dosage: 100 MICROGRAM, QD (IN MORNING AND ON AN EMPTY STOMACH)
     Route: 048
  4. METOPROLOL SUCCINATE [Concomitant]
     Active Substance: METOPROLOL SUCCINATE
     Dosage: 100 MILLIGRAM, QD
     Route: 048
  5. MIRAPEX [Concomitant]
     Active Substance: PRAMIPEXOLE DIHYDROCHLORIDE
     Dosage: UNK, BID
     Route: 048
  6. LAMICTAL XR [Concomitant]
     Active Substance: LAMOTRIGINE
     Dosage: 100 MILLIGRAM, BID
     Route: 048
  7. ZOLOFT [Concomitant]
     Active Substance: SERTRALINE HYDROCHLORIDE
     Route: 048
  8. AMLODIPINE BESYLATE [Concomitant]
     Active Substance: AMLODIPINE BESYLATE
     Dosage: 10 MILLIGRAM, QD (AT NIGHT)
     Route: 048
  9. FLUOCINONIDE [Concomitant]
     Active Substance: FLUOCINONIDE
  10. ALBUTEROL [Concomitant]
     Active Substance: ALBUTEROL
  11. SENNA LEAF [Concomitant]
     Active Substance: SENNA LEAF
     Dosage: 1 DOSAGE FORM, QD (8.6-50 MG)
     Route: 048
  12. MIRALAX [Concomitant]
     Active Substance: POLYETHYLENE GLYCOL 3350
     Route: 048
  13. TYLENOL EXTRA STRENGTH [Concomitant]
     Active Substance: ACETAMINOPHEN
     Route: 048
  14. LORAZEPAM [Concomitant]
     Active Substance: LORAZEPAM
  15. DULCOLAX (BISACODYL) [Concomitant]
     Active Substance: BISACODYL
     Dosage: 10 MILLIGRAM, QD, AS NEEDED
     Route: 054
  16. MOMETASONE FUROATE [Concomitant]
     Active Substance: MOMETASONE FUROATE
  17. TRAMADOL HCL [Concomitant]
     Active Substance: TRAMADOL HYDROCHLORIDE
     Dosage: 50 MILLIGRAM, BID, AS NEEDED
     Route: 048
  18. MILK OF MAGNESIA [Concomitant]
     Active Substance: MAGNESIUM HYDROXIDE
     Dosage: 5 MILLILITER, QD (400 MG/5ML SUSPENSION 5 ML AT LEAST 4 HOURS BETWEEN DOSES AS NEEDED ORALLY ONCE A
     Route: 048
  19. SERTRALINE HYDROCHLORIDE [Concomitant]
     Active Substance: SERTRALINE HYDROCHLORIDE
     Dosage: 50 MILLIGRAM, QD
     Route: 048
  20. PRAMIPEXOLE DIHYDROCHLORIDE [Concomitant]
     Active Substance: PRAMIPEXOLE DIHYDROCHLORIDE
     Dosage: 0.25 MILLIGRAM, BID
     Route: 048

REACTIONS (8)
  - Hallucination [Unknown]
  - Feeling abnormal [Unknown]
  - Condition aggravated [Unknown]
  - Anxiety [Unknown]
  - Blepharitis [Unknown]
  - Restless legs syndrome [Unknown]
  - Wheelchair user [Unknown]
  - Dyspnoea [Unknown]
